FAERS Safety Report 25152719 (Version 1)
Quarter: 2025Q2

REPORT INFORMATION
  Report Type: Report from Study
  Country: US (occurrence: US)
  Receive Date: 20250403
  Receipt Date: 20250403
  Transmission Date: 20250717
  Serious: Yes (Other)
  Sender: ABBVIE
  Company Number: US-ABBVIE-5747897

PATIENT
  Age: 36 Year
  Sex: Female

DRUGS (1)
  1. HUMIRA [Suspect]
     Active Substance: ADALIMUMAB
     Indication: Uveitis
     Route: 058
     Dates: start: 20231110

REACTIONS (13)
  - Small intestine carcinoma metastatic [Unknown]
  - Injection site papule [Not Recovered/Not Resolved]
  - Mast cell activation syndrome [Unknown]
  - Hypersensitivity [Unknown]
  - Injection site erythema [Recovering/Resolving]
  - Injection site urticaria [Recovering/Resolving]
  - Injection site pruritus [Recovering/Resolving]
  - Sinus disorder [Unknown]
  - Skin discolouration [Unknown]
  - Nausea [Unknown]
  - Infection parasitic [Unknown]
  - Hereditary haemorrhagic telangiectasia [Unknown]
  - Blood iron decreased [Unknown]

NARRATIVE: CASE EVENT DATE: 20240101
